FAERS Safety Report 5939517-7 (Version None)
Quarter: 2008Q4

REPORT INFORMATION
  Report Type: 
  Country: None (occurrence: None)
  Receive Date: 20081030
  Receipt Date: 20081020
  Transmission Date: 20090506
  Serious: Yes (Life-Threatening, Hospitalization)
  Sender: FDA-Public Use
  Company Number: 2008-04023

PATIENT
  Age: 53 Year
  Sex: Male
  Weight: 105 kg

DRUGS (2)
  1. VELCADE [Suspect]
     Indication: RENAL CELL CARCINOMA
     Dosage: 1.3 MG/M2,  INTRAVENOUS
     Route: 042
     Dates: start: 20061002, end: 20070105
  2. BEVACIZUMAB(BEVACIZUMAB) [Suspect]
     Indication: RENAL CELL CARCINOMA
     Dosage: 15 MG/KG, INTRAVENOUS
     Route: 042
     Dates: start: 20061002, end: 20061227

REACTIONS (3)
  - HYPOGLYCAEMIA [None]
  - HYPOTENSION [None]
  - SYNCOPE [None]
